FAERS Safety Report 20292146 (Version 1)
Quarter: 2022Q1

REPORT INFORMATION
  Report Type: Spontaneous
  Country: US (occurrence: None)
  Receive Date: 20220104
  Receipt Date: 20220104
  Transmission Date: 20220423
  Serious: Yes (Disabling)
  Sender: FDA-Public Use
  Company Number: None

PATIENT
  Age: 68 Year
  Sex: Male
  Weight: 86.85 kg

DRUGS (12)
  1. DIAZEPAM [Suspect]
     Active Substance: DIAZEPAM
     Indication: Generalised anxiety disorder
     Dosage: OTHER QUANTITY : 1 TABLET(S);?FREQUENCY : DAILY;?
     Route: 048
  2. DIAZEPAM [Suspect]
     Active Substance: DIAZEPAM
     Indication: Cerebrovascular accident
  3. DIAZEPAM [Suspect]
     Active Substance: DIAZEPAM
     Indication: Spinal disorder
  4. BYSTOLIC [Concomitant]
  5. LISINOPRIL [Concomitant]
     Active Substance: LISINOPRIL
  6. ATORVASTATIN [Concomitant]
     Active Substance: ATORVASTATIN
  7. BREO ELLIPTA [Concomitant]
     Active Substance: FLUTICASONE FUROATE\VILANTEROL TRIFENATATE
  8. ALBUTEROL [Concomitant]
     Active Substance: ALBUTEROL
  9. ZYRTEC [Concomitant]
     Active Substance: CETIRIZINE HYDROCHLORIDE
  10. TYLENOL [Concomitant]
     Active Substance: ACETAMINOPHEN
  11. NAPROXEN [Concomitant]
     Active Substance: NAPROXEN
  12. B COMPLEX VITAMIN [Concomitant]

REACTIONS (3)
  - Chest pain [None]
  - Palpitations [None]
  - Heart rate increased [None]

NARRATIVE: CASE EVENT DATE: 20211222
